FAERS Safety Report 5507870-4 (Version None)
Quarter: 2007Q4

REPORT INFORMATION
  Report Type: 
  Country: None (occurrence: None)
  Receive Date: 20071031
  Receipt Date: 20070808
  Transmission Date: 20080405
  Serious: Yes (Life-Threatening)
  Sender: FDA-Public Use
  Company Number: 06H-163-0309580-00

PATIENT
  Sex: 0

DRUGS (1)
  1. AMIDATE [Suspect]
     Dates: start: 20060801

REACTIONS (1)
  - DEVICE FAILURE [None]
